FAERS Safety Report 7640903-8 (Version None)
Quarter: 2011Q3

REPORT INFORMATION
  Report Type: 
  Country: None (occurrence: None)
  Receive Date: 20110728
  Receipt Date: 20110728
  Transmission Date: 20111222
  Serious: Yes (Other)
  Sender: FDA-Public Use
  Company Number: None

PATIENT
  Age: 62 Year
  Sex: Male
  Weight: 86.4 kg

DRUGS (1)
  1. TEFLARO [Suspect]
     Indication: CELLULITIS
     Dosage: 600MG
     Route: 042
     Dates: start: 20110524, end: 20110528

REACTIONS (1)
  - RASH MACULO-PAPULAR [None]
